FAERS Safety Report 11611302 (Version 2)
Quarter: 2015Q4

REPORT INFORMATION
  Report Type: Spontaneous
  Country: SE (occurrence: SE)
  Receive Date: 20151008
  Receipt Date: 20151019
  Transmission Date: 20160304
  Serious: Yes (Hospitalization)
  Sender: FDA-Public Use
  Company Number: SE-TEVA-598215ACC

PATIENT
  Age: 52 Year
  Sex: Male

DRUGS (8)
  1. OXASCAND 10 MG TABLETT [Suspect]
     Active Substance: OXAZEPAM
     Dosage: THE PATIENT TOOK 30 PIECES OF TABLETS OF 10 MG AT A TIME
     Route: 048
     Dates: start: 20150912, end: 20150912
  2. ENALAPRIL [Concomitant]
     Active Substance: ENALAPRIL
  3. OXASCAND 10 MG TABLETT [Suspect]
     Active Substance: OXAZEPAM
     Route: 048
  4. ZOPICLONE [Suspect]
     Active Substance: ZOPICLONE
     Route: 048
  5. NOVORAPID [Suspect]
     Active Substance: INSULIN ASPART
     Indication: DIABETES MELLITUS
     Dates: start: 20150912, end: 20150912
  6. ZOPICLONE [Suspect]
     Active Substance: ZOPICLONE
     Indication: SLEEP DISORDER
     Dosage: PATIENTEN INTOG 25 STYCKEN TABLETTER ? 5 MG VID ETT TILLF?LLE.
     Route: 048
     Dates: start: 20150912, end: 20150912
  7. DUROFERON [Concomitant]
     Active Substance: FERROUS SULFATE\FERROUS SULFATE, DRIED
     Dosage: SUSTAINED-RELEASE TABLET
  8. INSUMAN [Suspect]
     Active Substance: INSULIN HUMAN
     Indication: DIABETES MELLITUS
     Dates: start: 20150912, end: 20150912

REACTIONS (2)
  - Blood glucose decreased [Recovered/Resolved]
  - Toxicity to various agents [Recovered/Resolved]

NARRATIVE: CASE EVENT DATE: 20150912
